FAERS Safety Report 16942638 (Version 2)
Quarter: 2019Q4

REPORT INFORMATION
  Report Type: Spontaneous
  Country: US (occurrence: US)
  Receive Date: 20191021
  Receipt Date: 20191022
  Transmission Date: 20200122
  Serious: Yes (Hospitalization)
  Sender: FDA-Public Use
  Company Number: US-SHIRE-US201935076

PATIENT
  Age: 51 Year
  Sex: Female

DRUGS (2)
  1. CALCIUM CITRATE [Concomitant]
     Active Substance: CALCIUM CITRATE
     Indication: PRODUCT USED FOR UNKNOWN INDICATION
  2. NATPARA (PARATHYROID HORMONE) [Suspect]
     Active Substance: PARATHYROID HORMONE
     Indication: HYPOPARATHYROIDISM
     Dosage: 150 MICROGRAM, 1X/DAY:QD
     Route: 058
     Dates: start: 2013

REACTIONS (4)
  - Off label use [Unknown]
  - Palpitations [Unknown]
  - Dyspnoea [Unknown]
  - Recalled product [Unknown]

NARRATIVE: CASE EVENT DATE: 20191013
